FAERS Safety Report 9962679 (Version 2)
Quarter: 2014Q1

REPORT INFORMATION
  Report Type: Report from Study
  Country: US (occurrence: US)
  Receive Date: 20140305
  Receipt Date: 20140305
  Transmission Date: 20141002
  Serious: Yes (Hospitalization)
  Sender: FDA-Public Use
  Company Number: US-ABBVIE-13P-163-1097159-00

PATIENT
  Age: 63 Year
  Sex: Male
  Weight: 98.06 kg

DRUGS (11)
  1. HUMIRA [Suspect]
     Indication: ANKYLOSING SPONDYLITIS
     Dates: start: 20130314
  2. SULFASALAZINE [Concomitant]
     Indication: PRODUCT USED FOR UNKNOWN INDICATION
  3. ALLOPURINOL [Concomitant]
     Indication: GOUT
     Dosage: 300 MG DAILY
  4. ASPIRIN [Concomitant]
     Indication: PRODUCT USED FOR UNKNOWN INDICATION
     Dosage: 81 MG DAILY
  5. EXFORGE [Concomitant]
     Indication: RENAL DISORDER
     Dosage: 5-160 MG ONE DAILY
  6. EXFORGE [Concomitant]
     Indication: BLOOD PRESSURE
  7. GEMFIBROZIL [Concomitant]
     Indication: BLOOD TRIGLYCERIDES
  8. JANUMET [Concomitant]
     Indication: TYPE 2 DIABETES MELLITUS
     Dosage: 50-500
  9. NIACIN [Concomitant]
     Indication: BLOOD CHOLESTEROL INCREASED
  10. XALANTAN [Concomitant]
     Indication: ABNORMAL SENSATION IN EYE
     Dosage: EACH EYE AT BEDTIME
  11. METAMUCIL [Concomitant]
     Indication: HAEMORRHOIDS

REACTIONS (2)
  - Squamous cell carcinoma [Recovering/Resolving]
  - Blood blister [Not Recovered/Not Resolved]
